FAERS Safety Report 8757800 (Version 2)
Quarter: 2013Q1

REPORT INFORMATION
  Report Type: Report from Study
  Country: JP (occurrence: JP)
  Receive Date: 20120828
  Receipt Date: 20130306
  Transmission Date: 20140127
  Serious: Yes (Death)
  Sender: FDA-Public Use
  Company Number: JP-ROCHE-GNE306372

PATIENT
  Sex: 0

DRUGS (2)
  1. ALTEPLASE [Suspect]
     Indication: CEREBROVASCULAR ACCIDENT
     Dosage: 10% OF 0.6 MG/KG AS A BOLUS WITHIN 3 H OF STROKE ONSET, SINGLE
     Route: 040
  2. ALTEPLASE [Suspect]
     Dosage: CONTINUOUS IV INFUSION OF THE REMAINDER OVER 1 H, SINGLE
     Route: 041

REACTIONS (1)
  - Death [Fatal]
